FAERS Safety Report 6129377-6 (Version None)
Quarter: 2009Q1

REPORT INFORMATION
  Report Type: 
  Country: None (occurrence: None)
  Receive Date: 20090324
  Receipt Date: 20090310
  Transmission Date: 20090719
  Serious: Yes (Other)
  Sender: FDA-Public Use
  Company Number: US-PFIZER INC-2006026564

PATIENT
  Sex: Female
  Weight: 61 kg

DRUGS (8)
  1. PROVERA [Suspect]
  2. OGEN [Suspect]
     Indication: HORMONE REPLACEMENT THERAPY
     Dosage: 2.5 MG, UNK
     Route: 048
     Dates: start: 19980101, end: 20010101
  3. OGEN [Suspect]
     Indication: MENOPAUSE
  4. ESTROPIPATE [Suspect]
     Indication: HORMONE REPLACEMENT THERAPY
     Dosage: 1.5 MG, UNK
     Dates: start: 19970101, end: 20010101
  5. ESTROPIPATE [Suspect]
     Indication: MENOPAUSE
  6. PREMARIN [Suspect]
     Indication: HORMONE REPLACEMENT THERAPY
     Dosage: 0.625 MG, UNK
     Dates: start: 19770101, end: 19970101
  7. PREMARIN [Suspect]
     Indication: MENOPAUSE
  8. PRILOSEC [Concomitant]
     Dosage: UNK
     Dates: start: 19980101

REACTIONS (3)
  - LUNG CANCER METASTATIC [None]
  - OVARIAN CANCER [None]
  - URETERIC INJURY [None]
